FAERS Safety Report 17873306 (Version 1)
Quarter: 2020Q2

REPORT INFORMATION
  Report Type: Spontaneous
  Country: US (occurrence: US)
  Receive Date: 20200608
  Receipt Date: 20200608
  Transmission Date: 20200714
  Serious: No
  Sender: FDA-Public Use
  Company Number: US-JNJFOC-20200526824

PATIENT
  Sex: Male
  Weight: 136.2 kg

DRUGS (3)
  1. XARELTO [Concomitant]
     Active Substance: RIVAROXABAN
     Indication: COAGULOPATHY
     Route: 065
     Dates: start: 2020
  2. TYLENOL [Suspect]
     Active Substance: ACETAMINOPHEN
     Indication: GOUT
  3. TYLENOL [Suspect]
     Active Substance: ACETAMINOPHEN
     Indication: GOUT
     Route: 065

REACTIONS (1)
  - Drug ineffective [Unknown]

NARRATIVE: CASE EVENT DATE: 2020
